FAERS Safety Report 13094884 (Version 4)
Quarter: 2017Q1

REPORT INFORMATION
  Report Type: Spontaneous
  Country: US (occurrence: US)
  Receive Date: 20170106
  Receipt Date: 20170331
  Transmission Date: 20170428
  Serious: Yes (Other)
  Sender: FDA-Public Use
  Company Number: US-ALLERGAN-1700258US

PATIENT
  Age: 56 Year
  Sex: Female
  Weight: 61.68 kg

DRUGS (7)
  1. BOTOX COSMETIC [Suspect]
     Active Substance: ONABOTULINUMTOXINA
     Dosage: 8 UNITS, SINGLE
     Route: 030
     Dates: start: 20161112, end: 20161112
  2. BOTOX COSMETIC [Suspect]
     Active Substance: ONABOTULINUMTOXINA
     Indication: SKIN WRINKLING
     Dosage: 6 UNITS, SINGLE
     Route: 030
     Dates: start: 20161203, end: 20161203
  3. BOTOX COSMETIC [Suspect]
     Active Substance: ONABOTULINUMTOXINA
     Dosage: 1 UNITS, SINGLE
     Route: 030
     Dates: start: 20161203, end: 20161203
  4. BOTOX COSMETIC [Suspect]
     Active Substance: ONABOTULINUMTOXINA
     Indication: SKIN WRINKLING
     Dosage: 2 UNITS, SINGLE
     Route: 030
     Dates: start: 20161203, end: 20161203
  5. BOTOX COSMETIC [Suspect]
     Active Substance: ONABOTULINUMTOXINA
     Dosage: UNK UNK, SINGLE
     Route: 030
     Dates: start: 201603, end: 201603
  6. BOTOX COSMETIC [Suspect]
     Active Substance: ONABOTULINUMTOXINA
     Dosage: 1 UNITS, SINGLE
     Route: 030
     Dates: start: 20161203, end: 20161203
  7. BOTOX COSMETIC [Suspect]
     Active Substance: ONABOTULINUMTOXINA
     Dosage: 8 UNITS, SINGLE
     Route: 030
     Dates: start: 20161112, end: 20161112

REACTIONS (4)
  - Deafness unilateral [Not Recovered/Not Resolved]
  - Product preparation error [Unknown]
  - Ear disorder [Not Recovered/Not Resolved]
  - Tinnitus [Not Recovered/Not Resolved]

NARRATIVE: CASE EVENT DATE: 2016
